FAERS Safety Report 18025344 (Version 3)
Quarter: 2020Q3

REPORT INFORMATION
  Report Type: Spontaneous
  Country: US (occurrence: US)
  Receive Date: 20200715
  Receipt Date: 20200805
  Transmission Date: 20201103
  Serious: No
  Sender: FDA-Public Use
  Company Number: US-009507513-2007USA005514

PATIENT
  Sex: Female
  Weight: 90.25 kg

DRUGS (1)
  1. NEXPLANON [Suspect]
     Active Substance: ETONOGESTREL
     Dosage: 1 IMPLANT, LEFT ARM
     Route: 059
     Dates: start: 2019, end: 20200609

REACTIONS (2)
  - Pregnancy test false positive [Unknown]
  - Emotional distress [Recovering/Resolving]

NARRATIVE: CASE EVENT DATE: 2020
